FAERS Safety Report 4717974-1 (Version None)
Quarter: 2005Q3

REPORT INFORMATION
  Report Type: 
  Country: None (occurrence: None)
  Receive Date: 20050718
  Receipt Date: 20050208
  Transmission Date: 20060218
  Serious: No
  Sender: FDA-Public Use
  Company Number: 2005000298

PATIENT
  Age: 79 Year
  Sex: Female

DRUGS (1)
  1. TARCEVA [Suspect]
     Indication: LUNG NEOPLASM MALIGNANT
     Dosage: ORAL
     Route: 048

REACTIONS (3)
  - DIARRHOEA [None]
  - ERUCTATION [None]
  - FLATULENCE [None]
